FAERS Safety Report 18493688 (Version 2)
Quarter: 2021Q4

REPORT INFORMATION
  Report Type: Report from Study
  Country: US (occurrence: US)
  Receive Date: 20201111
  Receipt Date: 20211018
  Transmission Date: 20220303
  Serious: Yes (Other)
  Sender: FDA-Public Use
  Company Number: US-TAKEDA-2020TUS048439

PATIENT
  Age: 57 Year
  Sex: Female

DRUGS (1)
  1. VEDOLIZUMAB [Suspect]
     Active Substance: VEDOLIZUMAB
     Indication: Colitis
     Dosage: 300 MILLIGRAM
     Route: 042

REACTIONS (18)
  - Nephrolithiasis [Unknown]
  - Vertigo positional [Unknown]
  - Neck pain [Unknown]
  - Vitamin D deficiency [Unknown]
  - Gastritis [Unknown]
  - Colitis [Unknown]
  - Gastrooesophageal reflux disease [Unknown]
  - Cystitis interstitial [Unknown]
  - Hypercalciuria [Unknown]
  - Osteopenia [Unknown]
  - Costochondritis [Unknown]
  - Hyperlipidaemia [Unknown]
  - Stress [Unknown]
  - Anxiety [Unknown]
  - Hot flush [Unknown]
  - Rash [Unknown]
  - Headache [Unknown]
  - Off label use [Unknown]

NARRATIVE: CASE EVENT DATE: 20210801
